FAERS Safety Report 8007013-1 (Version None)
Quarter: 2011Q4

REPORT INFORMATION
  Report Type: 
  Country: None (occurrence: None)
  Receive Date: 20111227
  Receipt Date: 20111222
  Transmission Date: 20120403
  Serious: Yes (Other)
  Sender: FDA-Public Use
  Company Number: US-PFIZER INC-2011312614

PATIENT
  Sex: Male
  Weight: 104.3 kg

DRUGS (6)
  1. LIPITOR [Suspect]
     Dosage: 60 MG, DAILY
     Dates: start: 20100101, end: 20110801
  2. LIPITOR [Suspect]
     Dosage: 40 MG, DAILY
     Dates: start: 20111101, end: 20111201
  3. WARFARIN [Concomitant]
     Dosage: 3 MG, 2X/DAY
  4. LIPITOR [Suspect]
     Dosage: 80 MG, DAILY
     Dates: start: 20110801, end: 20110901
  5. AMIODARONE [Concomitant]
     Dosage: UNK, DAILY
  6. LIPITOR [Suspect]
     Indication: BLOOD CHOLESTEROL INCREASED
     Dosage: 40 MG, DAILY,
     Dates: end: 20100101

REACTIONS (2)
  - FEELING ABNORMAL [None]
  - BALANCE DISORDER [None]
